FAERS Safety Report 9759864 (Version 2)
Quarter: 2014Q1

REPORT INFORMATION
  Report Type: Spontaneous
  Country: KZ (occurrence: None)
  Receive Date: 20131212
  Receipt Date: 20140131
  Transmission Date: 20141002
  Serious: Yes (Other)
  Sender: FDA-Public Use
  Company Number: KZ-JNJFOC-20131201146

PATIENT
  Age: 77 Year
  Sex: Female

DRUGS (16)
  1. DACOGEN (DECITABINE) LYOPHILIZED POWDER [Suspect]
     Indication: ACUTE MYELOID LEUKAEMIA
     Route: 042
     Dates: start: 20131115, end: 20131119
  2. POTASSIUM CHLORIDE [Concomitant]
  3. NEBILET (NEBIVOLOL HYDROCHLORIDE) [Concomitant]
  4. ACYCLOVIR (ACICLOVIR) [Concomitant]
  5. LEXATUMUMAB (MONOCLONAL ANTIBODIES) [Concomitant]
  6. HYDREA (HYDROXYCARBAMIDE) [Concomitant]
  7. CYTARABINE (CYTARABINE) [Concomitant]
  8. METHOTREXATE (METHOTREXATE) [Concomitant]
  9. ACYCLOVIR (ACICLOVIR) [Concomitant]
  10. LISINOPRIL (LISINOPRIL) [Concomitant]
  11. AMLODIPINE (AMLODIPINE) [Concomitant]
  12. FISIOTENS (MOXONIDINE) [Concomitant]
  13. ALLOPURINOL (ALLOPURINOL) [Concomitant]
  14. OMEZ (OMEPRAZOLE) [Concomitant]
  15. GLUCOSE (GLUCOSE) [Concomitant]
  16. CERUCAL (METOCLOPRAMIDE HYDROCHLORIDE) [Concomitant]

REACTIONS (7)
  - White blood cell count increased [None]
  - Thrombocytopenia [None]
  - Disseminated intravascular coagulation [None]
  - Hypertension [None]
  - Haemorrhage [None]
  - Oral herpes [None]
  - Encephalopathy [None]
